FAERS Safety Report 7983096-X (Version None)
Quarter: 2011Q4

REPORT INFORMATION
  Report Type: 
  Country: None (occurrence: None)
  Receive Date: 20111215
  Receipt Date: 20111212
  Transmission Date: 20120403
  Serious: Yes (Life-Threatening, Hospitalization)
  Sender: FDA-Public Use
  Company Number: JP-B.I. PHARMACEUTICALS,INC./RIDGEFIELD-2011-BP-27440NB

PATIENT
  Age: 56 Year
  Sex: Male
  Weight: 79.2 kg

DRUGS (1)
  1. PRADAXA [Suspect]
     Indication: ATRIAL FIBRILLATION
     Route: 048

REACTIONS (3)
  - ALTERED STATE OF CONSCIOUSNESS [None]
  - VISUAL FIELD DEFECT [None]
  - CEREBRAL HAEMORRHAGE [None]
